FAERS Safety Report 11403176 (Version 1)
Quarter: 2015Q3

REPORT INFORMATION
  Report Type: Report from Study
  Country: US (occurrence: US)
  Receive Date: 20150821
  Receipt Date: 20150821
  Transmission Date: 20151125
  Serious: No
  Sender: FDA-Public Use
  Company Number: PHEH2015US015606

PATIENT
  Sex: Male

DRUGS (3)
  1. ENTRESTO [Suspect]
     Active Substance: SACUBITRIL\VALSARTAN
     Indication: CARDIAC FAILURE CHRONIC
     Dosage: 100 MG, BID
     Route: 048
     Dates: start: 20150805
  2. LASIX [Concomitant]
     Active Substance: FUROSEMIDE
     Indication: CARDIAC FAILURE
     Dosage: 40 MG, QD
     Route: 048
  3. LOSARTAN TECNIMEDE [Concomitant]
     Indication: CARDIAC FAILURE
     Dosage: 80 MG, QD
     Route: 048

REACTIONS (5)
  - Poor quality sleep [Unknown]
  - Cardiac discomfort [Unknown]
  - Dysuria [Unknown]
  - Dizziness postural [Unknown]
  - Vision blurred [Unknown]
